FAERS Safety Report 5923865-0 (Version None)
Quarter: 2008Q4

REPORT INFORMATION
  Report Type: 
  Country: None (occurrence: None)
  Receive Date: 20081020
  Receipt Date: 20081006
  Transmission Date: 20090506
  Serious: Yes (Other)
  Sender: FDA-Public Use
  Company Number: DE-ROCHE-590175

PATIENT
  Age: 79 Year
  Sex: Male

DRUGS (2)
  1. CELLCEPT [Suspect]
     Indication: POLYNEUROPATHY
     Route: 065
     Dates: start: 20080803
  2. MARCUMAR [Interacting]
     Indication: DRUG USE FOR UNKNOWN INDICATION
     Route: 065

REACTIONS (3)
  - DRUG INTERACTION [None]
  - POLYNEUROPATHY [None]
  - PROTHROMBIN TIME PROLONGED [None]
